FAERS Safety Report 9193610 (Version 3)
Quarter: 2013Q2

REPORT INFORMATION
  Report Type: Spontaneous
  Country: US (occurrence: US)
  Receive Date: 20130327
  Receipt Date: 20130506
  Transmission Date: 20140414
  Serious: Yes (Death)
  Sender: FDA-Public Use
  Company Number: US-ASTRAZENECA-2013SE19733

PATIENT
  Age: 13 Month
  Sex: Female

DRUGS (8)
  1. SYNAGIS [Suspect]
     Indication: RESPIRATORY SYNCYTIAL VIRUS INFECTION
     Dosage: 100 MG/ML VIAL (LIQUID), INJECT 15 MG/KG,  ONCE A MONTH
     Route: 030
     Dates: start: 20121128, end: 20130226
  2. SYNAGIS [Suspect]
     Indication: PULMONARY HYPERTENSION
     Dosage: 100 MG/ML VIAL (LIQUID), INJECT 15 MG/KG,  ONCE A MONTH
     Route: 030
     Dates: start: 20121128, end: 20130226
  3. PULMICORT [Concomitant]
     Route: 055
  4. IRON [Concomitant]
  5. MVI [Concomitant]
  6. REVATIO [Concomitant]
  7. TRACLEER [Concomitant]
  8. OXYGEN [Concomitant]

REACTIONS (2)
  - Cardiac arrest [Fatal]
  - Pulmonary hypertension [Fatal]
